FAERS Safety Report 18924641 (Version 2)
Quarter: 2021Q2

REPORT INFORMATION
  Report Type: Spontaneous
  Country: FR (occurrence: FR)
  Receive Date: 20210222
  Receipt Date: 20210407
  Transmission Date: 20210717
  Serious: Yes (Life-Threatening)
  Sender: FDA-Public Use
  Company Number: FR-PFIZER INC-2021160030

PATIENT
  Age: 71 Year
  Sex: Male
  Weight: 85 kg

DRUGS (7)
  1. ANDROTARDYL [Concomitant]
     Active Substance: TESTOSTERONE
     Dosage: 250 MG, MONTHLY
     Route: 030
     Dates: end: 202010
  2. APROVEL [Concomitant]
     Active Substance: IRBESARTAN
     Indication: HYPERTENSION
     Dosage: 150 MG, 1X/DAY
     Route: 048
  3. KETAMINE [Suspect]
     Active Substance: KETAMINE
     Dosage: 0.5 MG/KG
     Route: 041
  4. ROCURONIUM BROMIDE. [Suspect]
     Active Substance: ROCURONIUM BROMIDE
     Dosage: 1.2 MG/KG
     Route: 042
  5. LIDOCAINE. [Suspect]
     Active Substance: LIDOCAINE
     Dosage: 2 MG/KG
     Route: 041
  6. DEXMEDETOMIDINE HCL [Suspect]
     Active Substance: DEXMEDETOMIDINE HYDROCHLORIDE
     Dosage: UNK
     Route: 042
  7. PROPOFOL. [Suspect]
     Active Substance: PROPOFOL
     Dosage: 3 MG/KG
     Route: 042

REACTIONS (1)
  - Anaphylactic shock [Recovered/Resolved]

NARRATIVE: CASE EVENT DATE: 20210114
